FAERS Safety Report 4450623-9 (Version None)
Quarter: 2004Q3

REPORT INFORMATION
  Report Type: 
  Country: None (occurrence: None)
  Receive Date: 20040913
  Receipt Date: 20040517
  Transmission Date: 20050211
  Serious: No
  Sender: FDA-Public Use
  Company Number: 2004-BP-03853BP(0)

PATIENT
  Age: 73 Year
  Sex: Female

DRUGS (6)
  1. SPIRIVA [Suspect]
     Indication: CHRONIC OBSTRUCTIVE AIRWAYS DISEASE
     Dosage: 18 MCG (18 MCG), IH
     Route: 055
     Dates: start: 20040513, end: 20040514
  2. QVAR (BECLOMETASONE DIPROPIONATE) [Concomitant]
  3. ALBUTEROL [Concomitant]
  4. FORADIL [Concomitant]
  5. PROVENTIL (SALBUTAMOL SULFATE) [Concomitant]
  6. HORMONE REPLACEMENT (HORMONES AND RELATED AGENTS) [Concomitant]

REACTIONS (1)
  - PALPITATIONS [None]
